FAERS Safety Report 11121671 (Version 1)
Quarter: 2015Q2

REPORT INFORMATION
  Report Type: Spontaneous
  Country: US (occurrence: None)
  Receive Date: 20150518
  Receipt Date: 20150518
  Transmission Date: 20150821
  Serious: Yes (Disabling)
  Sender: FDA-Public Use
  Company Number: None

PATIENT
  Age: 81 Year
  Sex: Male
  Weight: 83.92 kg

DRUGS (12)
  1. ZIAC [Concomitant]
     Active Substance: BISOPROLOL FUMARATE\HYDROCHLOROTHIAZIDE
  2. MIRPAX [Concomitant]
  3. CELEXA [Concomitant]
     Active Substance: CITALOPRAM HYDROBROMIDE
  4. METHOTHEXANE [Concomitant]
  5. VITAMIN D2 [Concomitant]
     Active Substance: ERGOCALCIFEROL
  6. PRILOSEC [Concomitant]
     Active Substance: OMEPRAZOLE MAGNESIUM
  7. TRAMADOL [Concomitant]
     Active Substance: TRAMADOL
  8. REMICADE [Suspect]
     Active Substance: INFLIXIMAB
     Indication: RHEUMATOID ARTHRITIS
     Dosage: DEPENDS ON PATIENTS WEIGHT?INFUSION?EVERY 6 WEEKS ?INFUSION
     Route: 042
     Dates: start: 2014
  9. ARANESP [Concomitant]
     Active Substance: DARBEPOETIN ALFA
  10. PROLIA [Concomitant]
     Active Substance: DENOSUMAB
  11. CENTRUM VITAMINS [Concomitant]
  12. ALLOPURANOL [Concomitant]

REACTIONS (2)
  - Condition aggravated [None]
  - Restless legs syndrome [None]

NARRATIVE: CASE EVENT DATE: 20150430
